FAERS Safety Report 8613206-2 (Version None)
Quarter: 2012Q3

REPORT INFORMATION
  Report Type: 
  Country: None (occurrence: None)
  Receive Date: 20120822
  Receipt Date: 20120815
  Transmission Date: 20120928
  Serious: Yes (Hospitalization)
  Sender: FDA-Public Use
  Company Number: AU-BAXTER-2012BAX014610

PATIENT
  Sex: Male

DRUGS (13)
  1. KIOVIG [Suspect]
     Route: 042
     Dates: start: 20120814, end: 20120814
  2. LERCANIDIPINE [Concomitant]
     Indication: HYPERTENSION
     Route: 048
  3. ROSUVASTATIN [Concomitant]
     Indication: BLOOD CHOLESTEROL INCREASED
     Route: 048
  4. KIOVIG [Suspect]
  5. TELMISARTAN/HYDROCHLOROTHIAZIDE [Concomitant]
     Indication: HYPERTENSION
     Dosage: 80/25 MG
     Route: 048
  6. INTRAGAM [Concomitant]
     Route: 042
  7. LIPIDIL [Concomitant]
     Indication: BLOOD CHOLESTEROL INCREASED
     Route: 048
  8. ASPIRIN [Concomitant]
     Indication: CARDIOVASCULAR EVENT PROPHYLAXIS
     Route: 048
  9. DIAMICRON [Concomitant]
     Route: 048
  10. PANTOPRAZOLE [Concomitant]
     Route: 048
  11. ATENOLOL [Concomitant]
     Indication: HYPERTENSION
     Route: 048
  12. EZETIMIBE [Concomitant]
     Indication: BLOOD CHOLESTEROL INCREASED
     Route: 048
  13. METFORMIN [Concomitant]
     Route: 048

REACTIONS (2)
  - CHILLS [None]
  - FLANK PAIN [None]
